FAERS Safety Report 19150603 (Version 2)
Quarter: 2021Q2

REPORT INFORMATION
  Report Type: Report from Study
  Country: None (occurrence: PR)
  Receive Date: 20210418
  Receipt Date: 20210429
  Transmission Date: 20210717
  Serious: Yes (Hospitalization, Other)
  Sender: FDA-Public Use
  Company Number: PR-ABBVIE-21K-131-3857869-00

PATIENT
  Age: 63 Year
  Sex: Female
  Weight: 86.26 kg

DRUGS (2)
  1. VENCLEXTA [Suspect]
     Active Substance: VENETOCLAX
     Indication: ACUTE MYELOID LEUKAEMIA
     Dosage: DURATION 28 DAYS
     Route: 048
     Dates: start: 20210104, end: 2021
  2. XOSPATA [Concomitant]
     Active Substance: GILTERITINIB
     Indication: ACUTE MYELOID LEUKAEMIA

REACTIONS (9)
  - Abscess [Recovering/Resolving]
  - Haemorrhoids [Unknown]
  - Mobility decreased [Unknown]
  - Fungal infection [Recovering/Resolving]
  - Constipation [Recovered/Resolved]
  - Chromosomal mutation [Unknown]
  - Chemotherapy [Unknown]
  - Diverticular perforation [Recovering/Resolving]
  - White blood cell count increased [Unknown]

NARRATIVE: CASE EVENT DATE: 2021
